FAERS Safety Report 8875794 (Version 4)
Quarter: 2014Q1

REPORT INFORMATION
  Report Type: Spontaneous
  Country: US (occurrence: US)
  Receive Date: 20121023
  Receipt Date: 20140226
  Transmission Date: 20141002
  Serious: Yes (Hospitalization, Other)
  Sender: FDA-Public Use
  Company Number: US-009507513-1203USA02849

PATIENT
  Sex: Female
  Weight: 68.93 kg

DRUGS (8)
  1. FOSAMAX [Suspect]
     Indication: OSTEOPOROSIS
     Dosage: 10 MG, QD
     Route: 048
     Dates: start: 1998, end: 200308
  2. FOSAMAX [Suspect]
     Indication: OSTEOPENIA
     Dosage: 70 MG, UNK
     Route: 048
     Dates: start: 200309, end: 200702
  3. FOSAMAX PLUS D [Suspect]
     Indication: OSTEOPENIA
     Dosage: 70 MG, QW
     Route: 048
     Dates: start: 200703, end: 200809
  4. ALENDRONATE SODIUM [Suspect]
     Indication: OSTEOPOROSIS
     Dosage: 70 MG, QW
     Route: 048
     Dates: start: 200810, end: 200909
  5. ACTONEL [Suspect]
     Indication: OSTEOPOROSIS
     Dosage: 150 MG, UNK
     Route: 048
     Dates: start: 20091027, end: 201002
  6. ACTONEL [Suspect]
     Indication: OSTEOPENIA
  7. BONIVA [Suspect]
     Indication: OSTEOPOROSIS
     Dosage: 150 MG, UNK
     Route: 048
     Dates: start: 201002, end: 201007
  8. ESTROGENS (UNSPECIFIED) [Suspect]
     Dosage: UNK
     Dates: start: 1996, end: 2011

REACTIONS (37)
  - Open reduction of fracture [Unknown]
  - Femur fracture [Not Recovered/Not Resolved]
  - Vaginal prolapse [Unknown]
  - Vaginal prolapse repair [Unknown]
  - Urinary incontinence [Unknown]
  - Bladder neck suspension [Unknown]
  - Uterine leiomyoma [Unknown]
  - Salpingo-oophorectomy bilateral [Unknown]
  - Hysterectomy [Unknown]
  - Fall [Unknown]
  - Femur fracture [Not Recovered/Not Resolved]
  - Polymyalgia rheumatica [Unknown]
  - Tooth fracture [Unknown]
  - Fracture delayed union [Not Recovered/Not Resolved]
  - Patella fracture [Recovered/Resolved]
  - Vitamin D deficiency [Unknown]
  - Calcium deficiency [Unknown]
  - Fall [Recovered/Resolved]
  - Hypertension [Unknown]
  - Adverse event [Unknown]
  - Arthritis [Unknown]
  - Rectocele [Unknown]
  - Hypothyroidism [Unknown]
  - Rosacea [Unknown]
  - Urinary incontinence [Unknown]
  - Viral upper respiratory tract infection [Unknown]
  - Pain [Not Recovered/Not Resolved]
  - Weight decreased [Recovered/Resolved]
  - Vertigo [Recovered/Resolved]
  - Constipation [Unknown]
  - Arthralgia [Unknown]
  - Surgery [Unknown]
  - Foot fracture [Unknown]
  - Osteoarthritis [Unknown]
  - Thyroid disorder [Unknown]
  - Bunion operation [Unknown]
  - Depression [Not Recovered/Not Resolved]
